FAERS Safety Report 20219120 (Version 9)
Quarter: 2022Q3

REPORT INFORMATION
  Report Type: Spontaneous
  Country: JP (occurrence: JP)
  Receive Date: 20211222
  Receipt Date: 20220902
  Transmission Date: 20221027
  Serious: Yes (Life-Threatening, Hospitalization, Other)
  Sender: FDA-Public Use
  Company Number: JP-BRISTOL-MYERS SQUIBB COMPANY-BMS-2021-138372

PATIENT
  Age: 72 Year
  Sex: Male

DRUGS (10)
  1. YERVOY [Suspect]
     Active Substance: IPILIMUMAB
     Indication: Pleural mesothelioma malignant
     Dosage: 1 MG/KG, Q6W
     Route: 041
  2. YERVOY [Suspect]
     Active Substance: IPILIMUMAB
     Dosage: 1 MILLIGRAM/KILOGRAM, Q6WK
     Route: 041
  3. OPDIVO [Suspect]
     Active Substance: NIVOLUMAB
     Indication: Pleural mesothelioma malignant
     Dosage: 360 MG, Q3W
     Route: 041
  4. OPDIVO [Suspect]
     Active Substance: NIVOLUMAB
     Dosage: 360 MILLIGRAM, Q3WK
     Route: 041
  5. PREDNISOLONE [Suspect]
     Active Substance: PREDNISOLONE
     Indication: Pneumonitis
     Dosage: UNK
     Route: 065
     Dates: start: 20211117
  6. PREDNISOLONE [Suspect]
     Active Substance: PREDNISOLONE
     Dosage: 70 MG
     Route: 065
     Dates: start: 20211203
  7. METHYLPREDNISOLONE SODIUM SUCCINATE [Suspect]
     Active Substance: METHYLPREDNISOLONE SODIUM SUCCINATE
     Indication: Pneumonitis
     Dosage: 1 G
     Route: 065
     Dates: start: 20211228, end: 20211230
  8. PREDONINE [Suspect]
     Active Substance: PREDNISOLONE
     Indication: Pneumonitis
     Dosage: 70 MG
     Route: 065
     Dates: start: 20211231
  9. PREDONINE [Suspect]
     Active Substance: PREDNISOLONE
  10. METHYLPREDNISOLONE [Suspect]
     Active Substance: METHYLPREDNISOLONE
     Indication: Pneumonitis
     Dosage: 1 GRAM
     Route: 065
     Dates: start: 20211228, end: 20211230

REACTIONS (6)
  - Meningitis cryptococcal [Recovered/Resolved]
  - Pneumonitis [Unknown]
  - Rash [Recovered/Resolved]
  - Pneumonia cryptococcal [Not Recovered/Not Resolved]
  - Infectious pleural effusion [Not Recovered/Not Resolved]
  - Malignant neoplasm progression [Unknown]

NARRATIVE: CASE EVENT DATE: 20211117
